FAERS Safety Report 24323869 (Version 1)
Quarter: 2024Q3

REPORT INFORMATION
  Report Type: Report from Study
  Country: US (occurrence: US)
  Receive Date: 20240916
  Receipt Date: 20240916
  Transmission Date: 20241017
  Serious: Yes (Other)
  Sender: JOHNSON AND JOHNSON
  Company Number: US-JNJFOC-20240934263

PATIENT
  Age: 22 Year
  Sex: Female

DRUGS (2)
  1. SPRAVATO [Suspect]
     Active Substance: ESKETAMINE
     Indication: Depression
     Dosage: ^^56 MG, 10 TOTAL DOSES^^
     Dates: start: 20220110, end: 20220218
  2. SPRAVATO [Suspect]
     Active Substance: ESKETAMINE
     Dosage: ^^84 MG, 22 TOTAL DOSES^^
     Dates: start: 20220228, end: 20240306

REACTIONS (1)
  - Metabolic surgery [Recovering/Resolving]

NARRATIVE: CASE EVENT DATE: 20240101
